FAERS Safety Report 6106792-8 (Version None)
Quarter: 2009Q1

REPORT INFORMATION
  Report Type: 
  Country: None (occurrence: None)
  Receive Date: 20090304
  Receipt Date: 20090217
  Transmission Date: 20090719
  Serious: Yes (Disabling)
  Sender: FDA-Public Use
  Company Number: 8043471

PATIENT
  Age: 44 Year
  Sex: Male

DRUGS (5)
  1. KEPPRA [Suspect]
     Indication: EPILEPSY
     Dosage: 500 MG 2/D PO
     Route: 048
     Dates: start: 20081107, end: 20090101
  2. KEPPRA [Suspect]
     Indication: EPILEPSY
     Dosage: 1000 MG 2/D PO
     Route: 048
     Dates: start: 20090114
  3. ADALAT [Suspect]
     Indication: HYPERTENSION
     Dosage: 30 MG 3/D PO
     Route: 048
     Dates: start: 20081201
  4. FERRO-GRAD FOLIC [Concomitant]
  5. SINTROM [Concomitant]

REACTIONS (2)
  - ERECTILE DYSFUNCTION [None]
  - PAIN [None]
